FAERS Safety Report 8121771-7 (Version None)
Quarter: 2012Q1

REPORT INFORMATION
  Report Type: 
  Country: None (occurrence: None)
  Receive Date: 20120208
  Receipt Date: 20120131
  Transmission Date: 20120608
  Serious: Yes (Other)
  Sender: FDA-Public Use
  Company Number: US-BIOMARINP-002280

PATIENT
  Sex: Female

DRUGS (3)
  1. SINOMET [Concomitant]
     Indication: PRODUCT USED FOR UNKNOWN INDICATION
  2. KUVAN [Suspect]
     Indication: PRODUCT USED FOR UNKNOWN INDICATION
     Route: 048
     Dates: start: 20100818
  3. KUVAN [Suspect]
     Route: 048

REACTIONS (1)
  - CONVULSION [None]
